FAERS Safety Report 6191243-8 (Version None)
Quarter: 2009Q2

REPORT INFORMATION
  Report Type: 
  Country: None (occurrence: None)
  Receive Date: 20090513
  Receipt Date: 20090513
  Transmission Date: 20091009
  Serious: Yes (Other)
  Sender: FDA-Public Use
  Company Number: None

PATIENT
  Sex: Female
  Weight: 54.4316 kg

DRUGS (1)
  1. DEXFERRUM [Suspect]
     Indication: ANAEMIA OF MALIGNANT DISEASE
     Dosage: 200MG ONE TIME I.V.
     Route: 042
     Dates: start: 20090402

REACTIONS (4)
  - DRUG HYPERSENSITIVITY [None]
  - GASTROINTESTINAL PAIN [None]
  - INFUSION RELATED REACTION [None]
  - LARYNGOSPASM [None]
